FAERS Safety Report 21901444 (Version 2)
Quarter: 2024Q1

REPORT INFORMATION
  Report Type: Spontaneous
  Country: DK (occurrence: DK)
  Receive Date: 20230123
  Receipt Date: 20240312
  Transmission Date: 20240410
  Serious: Yes (Death, Life-Threatening, Hospitalization, Other)
  Sender: FDA-Public Use
  Company Number: DK-CELLTRION INC.-2023DK000967

PATIENT

DRUGS (3)
  1. INFLIXIMAB [Suspect]
     Active Substance: INFLIXIMAB
     Indication: Crohn^s disease
     Dosage: DOSAGE: 300 MG ONCE EVERY 2.-8. WEEKS , STRENGTH: 100 MG
     Route: 042
     Dates: start: 20170216
  2. HYRIMOZ [Suspect]
     Active Substance: ADALIMUMAB-ADAZ
     Indication: Crohn^s disease
     Dosage: STRENGTH: 40 MG EVERY 14 DAYS
     Route: 058
     Dates: start: 20211210, end: 20220825
  3. AZATHIOPRINE [Suspect]
     Active Substance: AZATHIOPRINE
     Indication: Crohn^s disease
     Dosage: STRENGTH: 25 MG, EVERY 1 DAY
     Route: 048
     Dates: start: 20170216, end: 20220825

REACTIONS (6)
  - Hepatosplenic T-cell lymphoma [Fatal]
  - Sepsis [Fatal]
  - Hyperhidrosis [Fatal]
  - Pyrexia [Fatal]
  - Dysphonia [Fatal]
  - Underdose [Unknown]

NARRATIVE: CASE EVENT DATE: 20210101
